FAERS Safety Report 25482590 (Version 1)
Quarter: 2025Q2

REPORT INFORMATION
  Report Type: Spontaneous
  Country: US (occurrence: US)
  Receive Date: 20250626
  Receipt Date: 20250626
  Transmission Date: 20250716
  Serious: No
  Sender: CIPLA
  Company Number: US-CIPLA LTD.-2025US07813

PATIENT

DRUGS (27)
  1. LENALIDOMIDE [Suspect]
     Active Substance: LENALIDOMIDE
     Indication: Plasma cell myeloma
     Dosage: 15 MILLIGRAM, QD 21/28 DAYS (TAKE ONE CAPSULE ONCE DAILY BY MOUTH FOR 21 DAYS ON, 7 DAYS OFF OF EACH
     Route: 048
     Dates: start: 20240807
  2. LENALIDOMIDE [Concomitant]
     Active Substance: LENALIDOMIDE
     Indication: Product used for unknown indication
     Dosage: 15 MILLIGRAM, QD (TAKE ONE CAPSULE ONCE DAILY BY MOUTH FOR 14 DAYS ON, 7 DAYS OFF OF EACH 21 DAYS CY
     Route: 048
  3. LENALIDOMIDE [Concomitant]
     Active Substance: LENALIDOMIDE
     Dosage: 15 MILLIGRAM, QD (TAKE ONE CAPSULE ONCE DAILY BY MOUTH FOR 21 DAYS)
     Route: 048
  4. LENALIDOMIDA DR. REDDYS [Concomitant]
     Indication: Product used for unknown indication
     Dosage: 15 MILLIGRAM, QD (TAKE ONE CAPSULE ONCE DAILY BY MOUTH FOR 21 DAYS ON, 7 DAYS OFF OF EACH 28 DAYS CY
     Route: 048
  5. LENALIDOMIDE AUROBINDO [Concomitant]
     Indication: Product used for unknown indication
     Dosage: 15 MILLIGRAM, QD (TAKE ONE CAPSULE ONCE DAILY BY MOUTH FOR 21 DAYS ON, 7 DAYS OFF OF EACH 28 DAYS CY
     Route: 048
  6. LENALIDOMIDE AUROBINDO [Concomitant]
     Dosage: 15 MILLIGRAM, QD (TAKE ONE CAPSULE ONCE DAILY BY MOUTH FOR 21 DAYS ON, 7 DAYS OFF OF EACH 28 DAYS CY
     Route: 048
  7. REVLIMID [Concomitant]
     Active Substance: LENALIDOMIDE
     Indication: Product used for unknown indication
     Dosage: 25 MILLIGRAM, QD (TAKE ONE CAPSULE MY MOUTH ONCE DAILY FOR 14 DAYS ON, 7 DAYS OFF OF EACH 21 DAYS
     Route: 048
  8. REVLIMID [Concomitant]
     Active Substance: LENALIDOMIDE
     Dosage: 25 MILLIGRAM, QD (TAKE ONE CAPSULE MY MOUTH ONCE DAILY FOR 14 DAYS ON, 7 DAYS OFF OF EACH 21 DAYS
     Route: 048
  9. REVLIMID [Concomitant]
     Active Substance: LENALIDOMIDE
     Dosage: 25 MILLIGRAM, QD (TAKE ONE CAPSULE MY MOUTH ONCE DAILY FOR 14 DAYS ON, 7 DAYS OFF OF EACH 21 DAYS
     Route: 048
  10. REVLIMID [Concomitant]
     Active Substance: LENALIDOMIDE
     Dosage: 25 MILLIGRAM, QD (TAKE ONE CAPSULE MY MOUTH ONCE DAILY FOR 14 DAYS ON, 7 DAYS OFF OF EACH 21 DAYS
     Route: 048
  11. REVLIMID [Concomitant]
     Active Substance: LENALIDOMIDE
     Dosage: 25 MILLIGRAM, QD (TAKE ONE CAPSULE MY MOUTH ONCE DAILY FOR 14 DAYS ON, 7 DAYS OFF OF EACH 21 DAYS
     Route: 048
  12. POTASSIUM CHLORIDE EXTENDED RELEASE [Concomitant]
     Active Substance: POTASSIUM CHLORIDE
     Indication: Product used for unknown indication
     Route: 065
  13. MULTI VITAMIN [ASCORBIC ACID;FOLIC ACID;NICOTINIC ACID;PYRIDOXINE HYDR [Concomitant]
     Indication: Product used for unknown indication
     Route: 065
  14. BUSPIRONE HCL [Concomitant]
     Active Substance: BUSPIRONE HYDROCHLORIDE
     Indication: Product used for unknown indication
     Route: 065
  15. PLAVIX [Concomitant]
     Active Substance: CLOPIDOGREL BISULFATE
     Indication: Product used for unknown indication
     Route: 065
  16. DEXAMETHASONE [Concomitant]
     Active Substance: DEXAMETHASONE
     Indication: Product used for unknown indication
     Route: 065
  17. GEMFIBROZIL [Concomitant]
     Active Substance: GEMFIBROZIL
     Indication: Product used for unknown indication
     Route: 065
  18. HYDROCHLOROTHIAZIDE\TRIAMTERENE [Concomitant]
     Active Substance: HYDROCHLOROTHIAZIDE\TRIAMTERENE
     Indication: Product used for unknown indication
     Route: 065
  19. AMLODIPINE BESYLATE [Concomitant]
     Active Substance: AMLODIPINE BESYLATE
     Indication: Product used for unknown indication
     Route: 065
  20. PAROXETINE HYDROCHLORIDE [Concomitant]
     Active Substance: PAROXETINE HYDROCHLORIDE
     Indication: Product used for unknown indication
     Route: 065
  21. PRAVASTATIN SODIUM [Concomitant]
     Active Substance: PRAVASTATIN SODIUM
     Indication: Product used for unknown indication
     Route: 065
  22. LOSARTAN POTASSIUM [Concomitant]
     Active Substance: LOSARTAN POTASSIUM
     Indication: Product used for unknown indication
     Route: 065
  23. METOPROLOL SUCCINATE [Concomitant]
     Active Substance: METOPROLOL SUCCINATE
     Indication: Product used for unknown indication
     Route: 065
  24. ISOSORBIDE MONONITRATE [Concomitant]
     Active Substance: ISOSORBIDE MONONITRATE
     Indication: Product used for unknown indication
     Route: 065
  25. ESOMEPRAZOLE [Concomitant]
     Active Substance: ESOMEPRAZOLE
     Indication: Product used for unknown indication
     Route: 065
  26. LENALIDOMIDE [Concomitant]
     Active Substance: LENALIDOMIDE
     Indication: Product used for unknown indication
     Dosage: 15 MILLIGRAM, QD (TAKE ONE CAPSULE ONCE DAILY BY MOUTH FOR 21 DAYS ON, 7 DAYS OFF OF EACH 28 DAYS CY
     Route: 048
  27. HYDROCHLOROTHIAZIDE [Concomitant]
     Active Substance: HYDROCHLOROTHIAZIDE
     Indication: Product used for unknown indication
     Route: 065

REACTIONS (1)
  - Diarrhoea [Recovered/Resolved]

NARRATIVE: CASE EVENT DATE: 20250521
